FAERS Safety Report 8571623 (Version 3)
Quarter: 2013Q2

REPORT INFORMATION
  Report Type: Spontaneous
  Country: FR (occurrence: None)
  Receive Date: 20120514
  Receipt Date: 20120914
  Transmission Date: 20140414
  Serious: Yes (Other)
  Sender: FDA-Public Use
  Company Number: JPI-P-014323

PATIENT
  Age: 11 Year
  Sex: Male
  Weight: 46 kg

DRUGS (3)
  1. XYREM [Suspect]
     Indication: CATAPLEXY
     Dosage: SEE IMAGE
     Route: 048
     Dates: start: 20110215, end: 20110303
  2. VENLAFAXINE HYDROCHLORIDE [Concomitant]
  3. MAZINDOL [Concomitant]

REACTIONS (23)
  - NAUSEA [None]
  - ABDOMINAL PAIN [None]
  - AGITATION [None]
  - CRYING [None]
  - FATIGUE [None]
  - BULIMIA NERVOSA [None]
  - HUNGER [None]
  - AGGRESSION [None]
  - HEADACHE [None]
  - VOMITING [None]
  - SOMNOLENCE [None]
  - SUICIDAL IDEATION [None]
  - NERVOUSNESS [None]
  - NIGHTMARE [None]
  - DEPRESSION [None]
  - GASTROINTESTINAL DISORDER [None]
  - INSOMNIA [None]
  - RESTLESSNESS [None]
  - AORTIC VALVE SCLEROSIS [None]
  - TREATMENT NONCOMPLIANCE [None]
  - URTICARIA [None]
  - PAIN IN EXTREMITY [None]
  - CARDIAC MURMUR [None]
